FAERS Safety Report 9388071 (Version 1)
Quarter: 2013Q3

REPORT INFORMATION
  Report Type: Spontaneous
  Country: US (occurrence: None)
  Receive Date: 20130703
  Receipt Date: 20130703
  Transmission Date: 20140515
  Serious: Yes (Other)
  Sender: FDA-Public Use
  Company Number: CABO-13002899

PATIENT
  Age: 67 Year
  Sex: Female

DRUGS (16)
  1. COMETRIQ [Suspect]
     Indication: BREAST CANCER
     Route: 048
     Dates: start: 20130319, end: 20130404
  2. TUMS (CALCIUM CARBONATE) [Concomitant]
  3. MEGESTROL ACETATE (MEGESTROL ACETATE) [Concomitant]
  4. FENTANYL (FENTANYL) [Concomitant]
  5. COMPAZINE (PROCHLORPERAZINE EDISYLATE) [Concomitant]
  6. LOMOTIL (ATROPINE SULFATE, DIPHENOXYLATE HYDROCHLORIDE) [Concomitant]
  7. LEVOTHYROXINE (LEVOTHYROXINE) [Concomitant]
  8. LASIX (FUROSEMIDE) [Concomitant]
  9. LORAZEPAM (LORAZEPAM) [Concomitant]
  10. METOPROLOL (METOPROLOL) [Concomitant]
  11. HYDROMORPHONE (HYDROMORPHONE) [Concomitant]
  12. ASPIRIN (ACETYLSALICYLIC ACID) [Concomitant]
  13. NITROGLYCERINE (GLYCERYL TRINITRATE) [Concomitant]
  14. CIPROFLOXACIN (CIPROFLOXACIN) [Concomitant]
  15. LATEX PRODUCTS (LATEX PRODUCTS) [Concomitant]
  16. SULFA (SULFACETAMIDE SODIUM) [Concomitant]

REACTIONS (6)
  - Renal artery stent placement [None]
  - Malaise [None]
  - Oral pain [None]
  - Oropharyngeal pain [None]
  - Micturition urgency [None]
  - Defaecation urgency [None]
